FAERS Safety Report 23959340 (Version 1)
Quarter: 2024Q2

REPORT INFORMATION
  Report Type: Spontaneous
  Country: US (occurrence: US)
  Receive Date: 20240611
  Receipt Date: 20240611
  Transmission Date: 20240716
  Serious: No
  Sender: FDA-Public Use
  Company Number: US-ELI_LILLY_AND_COMPANY-US202406005229

PATIENT
  Age: 45 Year
  Sex: Female

DRUGS (2)
  1. OMVOH [Suspect]
     Active Substance: MIRIKIZUMAB-MRKZ
     Indication: Colitis ulcerative
     Dosage: UNK UNK, UNKNOWN
     Route: 065
  2. OMVOH [Suspect]
     Active Substance: MIRIKIZUMAB-MRKZ
     Dosage: 200 MG, UNKNOWN
     Route: 065
     Dates: start: 20240607

REACTIONS (2)
  - Injection site haemorrhage [Unknown]
  - Injection site pain [Unknown]

NARRATIVE: CASE EVENT DATE: 20240607
